FAERS Safety Report 5824976-0 (Version None)
Quarter: 2008Q3

REPORT INFORMATION
  Report Type: 
  Country: None (occurrence: None)
  Receive Date: 20080728
  Receipt Date: 20080716
  Transmission Date: 20090109
  Serious: Yes (Hospitalization, Other)
  Sender: FDA-Public Use
  Company Number: US-PFIZER INC-2008059686

PATIENT

DRUGS (1)
  1. GENOTROPIN [Suspect]

REACTIONS (2)
  - PNEUMONIA ASPIRATION [None]
  - SLEEP APNOEA SYNDROME [None]
